FAERS Safety Report 17514456 (Version 1)
Quarter: 2020Q1

REPORT INFORMATION
  Report Type: Spontaneous
  Country: US (occurrence: US)
  Receive Date: 20200307
  Receipt Date: 20200307
  Transmission Date: 20200409
  Serious: No
  Sender: FDA-Public Use
  Company Number: US-TEVA-2020-US-1194490

PATIENT
  Age: 24 Year
  Sex: Male
  Weight: 79.36 kg

DRUGS (1)
  1. FEXOFENADINE [Suspect]
     Active Substance: FEXOFENADINE HYDROCHLORIDE
     Indication: SEASONAL ALLERGY
     Dosage: 60 MILLIGRAM DAILY;
     Route: 065
     Dates: start: 202002, end: 202002

REACTIONS (1)
  - Drug ineffective [Unknown]
